FAERS Safety Report 10639364 (Version 1)
Quarter: 2014Q4

REPORT INFORMATION
  Report Type: Other
  Country: DE (occurrence: DE)
  Receive Date: 20141208
  Receipt Date: 20141208
  Transmission Date: 20150529
  Serious: Yes (Hospitalization)
  Sender: FDA-Public Use
  Company Number: DE-MYLANLABS-2014M1012398

PATIENT

DRUGS (7)
  1. CALCIUM BRAUSETABLETTEN [Concomitant]
     Indication: OSTEOPENIA
     Dosage: 500 MG, UNK
     Route: 048
     Dates: start: 20140915
  2. SALOFALK GRANU-STIX [Concomitant]
     Indication: CROHN^S DISEASE
     Dosage: 3 G, UNK
     Route: 048
     Dates: start: 20140915
  3. PREDNISOLON [Concomitant]
     Active Substance: PREDNISOLONE
     Indication: CROHN^S DISEASE
     Dosage: 30 MG, UNK
     Route: 048
     Dates: start: 20140915
  4. ZANTAC [Suspect]
     Active Substance: RANITIDINE HYDROCHLORIDE
     Indication: CROHN^S DISEASE
     Dosage: 150 MG, UNK
     Route: 048
     Dates: start: 20140920, end: 20141003
  5. VIGANTOLETTEN [Concomitant]
     Active Substance: CHOLECALCIFEROL
     Indication: OSTEOPENIA
     Dosage: 1000 IU, UNK
     Route: 048
     Dates: start: 20140915
  6. OXYCODON [Concomitant]
     Active Substance: OXYCODONE
     Indication: PAIN
     Dosage: 5 MG, UNK
     Route: 048
     Dates: start: 20140915
  7. PANTOZOL [Concomitant]
     Active Substance: PANTOPRAZOLE SODIUM
     Indication: GASTRITIS
     Dosage: 40 MG, UNK
     Route: 048
     Dates: start: 20140915

REACTIONS (3)
  - Neuralgia [Recovering/Resolving]
  - Myalgia [Recovering/Resolving]
  - Musculoskeletal discomfort [Recovering/Resolving]

NARRATIVE: CASE EVENT DATE: 20141001
